FAERS Safety Report 18484637 (Version 1)
Quarter: 2020Q4

REPORT INFORMATION
  Report Type: Spontaneous
  Country: GB (occurrence: GB)
  Receive Date: 20201110
  Receipt Date: 20201110
  Transmission Date: 20210114
  Serious: Yes (Death, Other)
  Sender: FDA-Public Use
  Company Number: NVSC2020GB300341

PATIENT
  Age: 68 Year
  Sex: Male

DRUGS (1)
  1. TACROLIMUS. [Suspect]
     Active Substance: TACROLIMUS
     Indication: RENAL TRANSPLANT
     Dosage: UNK UNK, QD  (4 UNITS UNKNOWN, ONCE DAILY)
     Route: 065
     Dates: start: 20150520

REACTIONS (1)
  - Death [Fatal]

NARRATIVE: CASE EVENT DATE: 20190819
